FAERS Safety Report 4335313-5 (Version None)
Quarter: 2004Q2

REPORT INFORMATION
  Report Type: 
  Country: None (occurrence: None)
  Receive Date: 20040408
  Receipt Date: 20040408
  Transmission Date: 20050107
  Serious: Yes (Hospitalization)
  Sender: FDA-Public Use
  Company Number: None

PATIENT
  Sex: Male

DRUGS (15)
  1. AMIODARONE HCL [Suspect]
     Indication: VENTRICULAR TACHYCARDIA
     Dosage: 1 MG/MIN IV CONTIN
     Route: 042
     Dates: start: 20040112, end: 20040122
  2. ALBUTEROL [Concomitant]
  3. IPRATROPIUM BROMIDE [Concomitant]
  4. LANSOPRAZOLE [Concomitant]
  5. DOCUSATE [Concomitant]
  6. FUROSEMIDE [Concomitant]
  7. ASPIRIN [Concomitant]
  8. CITALOPRAM [Concomitant]
  9. ENALAPRIL MALEATE [Concomitant]
  10. FERROUS SULFATE TAB [Concomitant]
  11. SSI [Concomitant]
  12. POTASSIUM [Concomitant]
  13. VIT E [Concomitant]
  14. ZINC [Concomitant]
  15. CA CARBONATE [Concomitant]

REACTIONS (4)
  - CARDIAC FAILURE CONGESTIVE [None]
  - CATHETER RELATED INFECTION [None]
  - PHLEBITIS [None]
  - VENTRICULAR TACHYCARDIA [None]
